FAERS Safety Report 25378841 (Version 3)
Quarter: 2025Q3

REPORT INFORMATION
  Report Type: Spontaneous
  Country: US (occurrence: US)
  Receive Date: 20250530
  Receipt Date: 20250731
  Transmission Date: 20251020
  Serious: Yes (Other)
  Sender: NOVARTIS
  Company Number: US-002147023-NVSC2025US086436

PATIENT
  Sex: Male

DRUGS (5)
  1. PROMACTA [Suspect]
     Active Substance: ELTROMBOPAG OLAMINE
     Indication: Platelet count decreased
     Dosage: 75 MG, BID (DAILY)
     Route: 048
  2. LOSARTAN [Concomitant]
     Active Substance: LOSARTAN
     Indication: Product used for unknown indication
     Route: 065
  3. METOPROLOL [Concomitant]
     Active Substance: METOPROLOL
     Indication: Product used for unknown indication
     Route: 065
  4. HYDROCHLOROTHIAZIDE [Concomitant]
     Active Substance: HYDROCHLOROTHIAZIDE
     Indication: Product used for unknown indication
     Route: 065
  5. TACROLIMUS [Concomitant]
     Active Substance: TACROLIMUS
     Indication: Product used for unknown indication
     Route: 065

REACTIONS (9)
  - Aplastic anaemia [Unknown]
  - Platelet count decreased [Unknown]
  - Micturition urgency [Recovered/Resolved]
  - Chest pain [Recovered/Resolved]
  - Dyspnoea exertional [Recovered/Resolved]
  - Eye infection viral [Unknown]
  - Diarrhoea [Recovered/Resolved]
  - Vision blurred [Unknown]
  - Asthenia [Unknown]
